FAERS Safety Report 13590152 (Version 1)
Quarter: 2017Q2

REPORT INFORMATION
  Report Type: Spontaneous
  Country: US (occurrence: US)
  Receive Date: 20170529
  Receipt Date: 20170529
  Transmission Date: 20170830
  Serious: Yes (Other)
  Sender: FDA-Public Use
  Company Number: None

PATIENT
  Age: 54 Year
  Sex: Female
  Weight: 88.65 kg

DRUGS (6)
  1. METFORMIN [Concomitant]
     Active Substance: METFORMIN HYDROCHLORIDE
  2. COZAAR [Concomitant]
     Active Substance: LOSARTAN POTASSIUM
  3. ALDACTONE [Concomitant]
     Active Substance: SPIRONOLACTONE
  4. LOPRESSOR [Concomitant]
     Active Substance: METOPROLOL TARTRATE
  5. GOLYTELY [Suspect]
     Active Substance: POLYETHYLENE GLYCOL 3350\POTASSIUM CHLORIDE\SODIUM BICARBONATE\SODIUM CHLORIDE\SODIUM SULFATE ANHYDROUS
     Indication: COLONOSCOPY
     Dosage: QUANTITY:128 OUNCE(S);?
     Route: 048
     Dates: start: 20170525, end: 20170525
  6. ASPIRIN. [Concomitant]
     Active Substance: ASPIRIN

REACTIONS (3)
  - Hypertension [None]
  - Paraesthesia [None]
  - Heart rate increased [None]

NARRATIVE: CASE EVENT DATE: 20170527
